FAERS Safety Report 5272106-9 (Version None)
Quarter: 2007Q1

REPORT INFORMATION
  Report Type: 
  Country: None (occurrence: None)
  Receive Date: 20070320
  Receipt Date: 20070320
  Transmission Date: 20070707
  Serious: Yes (Hospitalization)
  Sender: FDA-Public Use
  Company Number: None

PATIENT
  Sex: Female
  Weight: 96.1626 kg

DRUGS (2)
  1. ARAVA [Suspect]
     Indication: RHEUMATOID ARTHRITIS
     Dosage: 20 MG DAILY PO
     Route: 048
  2. HUMIRA [Suspect]
     Dosage: 40 MG EVERY OTHER WEEK SQ
     Route: 058

REACTIONS (1)
  - COLITIS [None]
